FAERS Safety Report 7130526-1 (Version None)
Quarter: 2010Q4

REPORT INFORMATION
  Report Type: 
  Country: None (occurrence: None)
  Receive Date: 20101029
  Receipt Date: 20100331
  Transmission Date: 20110411
  Serious: No
  Sender: FDA-Public Use
  Company Number: US-001788

PATIENT
  Sex: Male

DRUGS (2)
  1. FIRMAGON [Suspect]
     Indication: PROSTATE CANCER
     Dosage: (240 MG TOTAL SUBCUTANEOUS), (80 MG TOTAL SUBCUTANEOUS)
     Route: 058
     Dates: start: 20090821, end: 20090821
  2. FIRMAGON [Suspect]
     Indication: PROSTATE CANCER
     Dosage: (240 MG TOTAL SUBCUTANEOUS), (80 MG TOTAL SUBCUTANEOUS)
     Route: 058
     Dates: start: 20090918, end: 20090918

REACTIONS (2)
  - MUSCULOSKELETAL PAIN [None]
  - PAIN [None]
